FAERS Safety Report 11630844 (Version 3)
Quarter: 2015Q4

REPORT INFORMATION
  Report Type: Spontaneous
  Country: JP (occurrence: JP)
  Receive Date: 20151014
  Receipt Date: 20151026
  Transmission Date: 20160304
  Serious: Yes (Death, Other)
  Sender: FDA-Public Use
  Company Number: JP-ASTRAZENECA-2015SE98443

PATIENT
  Age: 55 Year
  Sex: Male

DRUGS (2)
  1. OMEPRAL [Suspect]
     Active Substance: OMEPRAZOLE
     Dosage: COULD BE A NON-ASTRAZENECA GENERIC OMEPRAZOLE
     Route: 065
  2. OMEPRAL [Suspect]
     Active Substance: OMEPRAZOLE
     Route: 048

REACTIONS (4)
  - Oesophageal varices haemorrhage [Fatal]
  - Multi-organ failure [Fatal]
  - Hepatitis fulminant [Not Recovered/Not Resolved]
  - Hepatic failure [Not Recovered/Not Resolved]
